FAERS Safety Report 14012429 (Version 1)
Quarter: 2017Q3

REPORT INFORMATION
  Report Type: Spontaneous
  Country: JP (occurrence: JP)
  Receive Date: 20170926
  Receipt Date: 20170926
  Transmission Date: 20171128
  Serious: Yes (Death, Hospitalization, Other)
  Sender: FDA-Public Use
  Company Number: JP-IMPAX LABORATORIES, INC-2017-IPXL-02753

PATIENT
  Age: 77 Year
  Sex: Male

DRUGS (6)
  1. METOCLOPRAMIDE HYDROCHLORIDE IR [Suspect]
     Active Substance: METOCLOPRAMIDE HYDROCHLORIDE
     Indication: APPETITE DISORDER
  2. METOCLOPRAMIDE HYDROCHLORIDE IR [Suspect]
     Active Substance: METOCLOPRAMIDE HYDROCHLORIDE
     Indication: IMPAIRED GASTRIC EMPTYING
     Dosage: SIX 5.0 MG TABLETS DAILY
     Route: 065
     Dates: start: 19910402, end: 199105
  3. METOCLOPRAMIDE HYDROCHLORIDE IR [Suspect]
     Active Substance: METOCLOPRAMIDE HYDROCHLORIDE
     Indication: NAUSEA
  4. CISAPRIDE [Suspect]
     Active Substance: CISAPRIDE
     Indication: IMPAIRED GASTRIC EMPTYING
     Dosage: THREE 2.5 MG TABLETS DAILY
     Route: 065
     Dates: start: 19910402, end: 199105
  5. CISAPRIDE [Suspect]
     Active Substance: CISAPRIDE
     Indication: APPETITE DISORDER
  6. CISAPRIDE [Suspect]
     Active Substance: CISAPRIDE
     Indication: NAUSEA

REACTIONS (4)
  - Neuroleptic malignant syndrome [Recovering/Resolving]
  - Vomiting [Fatal]
  - Haemorrhagic infarction [Unknown]
  - Asphyxia [Fatal]

NARRATIVE: CASE EVENT DATE: 199104
